FAERS Safety Report 4449364-3 (Version None)
Quarter: 2004Q3

REPORT INFORMATION
  Report Type: 
  Country: None (occurrence: None)
  Receive Date: 20040913
  Receipt Date: 20040827
  Transmission Date: 20050211
  Serious: Yes (Death)
  Sender: FDA-Public Use
  Company Number: 2004059928

PATIENT
  Age: 45 Year
  Sex: Male

DRUGS (7)
  1. LISTERINE ANTISEPTIC MOUTHWASH (EUCALYPTOL, MENTHOL, METHYL SALICYLATE [Suspect]
     Indication: ALCOHOLISM
     Dosage: ONE LARGE BOTTLE, ORAL
     Route: 048
  2. LEVOTHYROXINE SODIUM [Suspect]
  3. METOPROLOL TARTRATE [Concomitant]
  4. SIMVASTATIN [Concomitant]
  5. FOSINOPRIL SODIUM [Concomitant]
  6. ASPIRIN [Concomitant]
  7. THIAMINE (THIAMINE) [Concomitant]

REACTIONS (41)
  - ACIDOSIS [None]
  - AGE INDETERMINATE MYOCARDIAL INFARCTION [None]
  - ANION GAP INCREASED [None]
  - ANURIA [None]
  - BLOOD ALBUMIN INCREASED [None]
  - BLOOD CHLORIDE DECREASED [None]
  - BLOOD CREATINE INCREASED [None]
  - BLOOD GLUCOSE INCREASED [None]
  - BLOOD LACTIC ACID INCREASED [None]
  - BLOOD MAGNESIUM INCREASED [None]
  - BLOOD OSMOLARITY INCREASED [None]
  - BLOOD PH DECREASED [None]
  - BLOOD PHOSPHORUS INCREASED [None]
  - CEREBELLAR SYNDROME [None]
  - CHOLELITHIASIS [None]
  - CIRCULATORY COLLAPSE [None]
  - COLLAPSE OF LUNG [None]
  - DISSEMINATED INTRAVASCULAR COAGULATION [None]
  - EPIGASTRIC DISCOMFORT [None]
  - ESCHERICHIA INFECTION [None]
  - HAEMODIALYSIS [None]
  - HEPATIC FAILURE [None]
  - HEPATIC STEATOSIS [None]
  - HYPERVENTILATION [None]
  - INTENTIONAL MISUSE [None]
  - KLEBSIELLA INFECTION [None]
  - LETHARGY [None]
  - MULTI-ORGAN FAILURE [None]
  - NAUSEA [None]
  - OVERDOSE [None]
  - PANCREATITIS [None]
  - PCO2 DECREASED [None]
  - PLATELET COUNT DECREASED [None]
  - PNEUMONIA [None]
  - POISONING [None]
  - PULMONARY CONGESTION [None]
  - SINUS TACHYCARDIA [None]
  - SPUTUM CULTURE POSITIVE [None]
  - STAPHYLOCOCCAL INFECTION [None]
  - URINE KETONE BODY PRESENT [None]
  - VOMITING [None]
